FAERS Safety Report 8602931 (Version 2)
Quarter: 2012Q4

REPORT INFORMATION
  Report Type: 
  Country: US (occurrence: US)
  Receive Date: 20120607
  Receipt Date: 20120927
  Transmission Date: 20130627
  Serious: Yes (Other)
  Sender: FDA-Public Use
  Company Number: US-ASTRAZENECA-2012SE34978

PATIENT
  Age: 76 Year
  Sex: Female
  Weight: 100.7 kg

DRUGS (6)
  1. SYMBICORT [Suspect]
     Indication: EXPOSURE TO CHEMICAL POLLUTION
     Dosage: 80/4.5 TWO PUFFS, TWICE DAILY
     Route: 055
     Dates: start: 2011
  2. SYMBICORT [Suspect]
     Indication: EMPHYSEMA
     Dosage: 80/4.5 TWO PUFFS, TWICE DAILY
     Route: 055
     Dates: start: 2011
  3. CRESTOR [Suspect]
     Route: 048
  4. SEROQUEL [Suspect]
     Route: 048
  5. SPIRIVA [Concomitant]
  6. LEVOTHYROXINE [Concomitant]
     Indication: THYROID DISORDER

REACTIONS (2)
  - Non-Hodgkin^s lymphoma [Unknown]
  - Diverticulitis [Unknown]
